FAERS Safety Report 7346806-0 (Version None)
Quarter: 2011Q1

REPORT INFORMATION
  Report Type: 
  Country: None (occurrence: None)
  Receive Date: 20110225
  Receipt Date: 20110107
  Transmission Date: 20110831
  Serious: No
  Sender: FDA-Public Use
  Company Number: 321407

PATIENT
  Age: 39 Year
  Sex: Female

DRUGS (2)
  1. VICTOZA [Suspect]
     Indication: TYPE 2 DIABETES MELLITUS
     Dosage: 1.8 MG, QD, SUBCUTANEOUS
     Route: 058
  2. ACTOS [Suspect]
     Indication: TYPE 2 DIABETES MELLITUS

REACTIONS (3)
  - DIARRHOEA [None]
  - INJECTION SITE HAEMATOMA [None]
  - BLOOD GLUCOSE DECREASED [None]
